FAERS Safety Report 4900537-2 (Version None)
Quarter: 2006Q1

REPORT INFORMATION
  Report Type: 
  Country: None (occurrence: None)
  Receive Date: 20060127
  Receipt Date: 20051111
  Transmission Date: 20060701
  Serious: Yes (Hospitalization)
  Sender: FDA-Public Use
  Company Number: CLOF-10152

PATIENT
  Age: 74 Year
  Sex: Male

DRUGS (8)
  1. CLOFARABINE [Suspect]
     Indication: ACUTE MYELOID LEUKAEMIA
     Dosage: 68.7 MG QD X 5 IV
     Route: 042
     Dates: start: 20050406, end: 20050410
  2. CYTARABINE [Suspect]
     Indication: ACUTE MYELOID LEUKAEMIA
     Dosage: 46 MG QD SC
     Route: 058
     Dates: start: 20050406, end: 20050419
  3. BETAPACE [Concomitant]
  4. ZOCOR [Concomitant]
  5. CARDIZEM [Concomitant]
  6. K-DUR 10 [Concomitant]
  7. FLOMAX [Concomitant]
  8. PROSCAR [Concomitant]

REACTIONS (1)
  - SYNCOPE [None]
